FAERS Safety Report 7329973-4 (Version None)
Quarter: 2011Q1

REPORT INFORMATION
  Report Type: 
  Country: None (occurrence: None)
  Receive Date: 20110303
  Receipt Date: 20110301
  Transmission Date: 20110831
  Serious: Yes (Other)
  Sender: FDA-Public Use
  Company Number: US-BAYER-2011-019508

PATIENT
  Sex: Female

DRUGS (2)
  1. YAZ [Suspect]
     Dosage: UNK
     Route: 048
     Dates: start: 20070901, end: 20080301
  2. YASMIN [Suspect]
     Dosage: UNK
     Route: 048
     Dates: start: 20030201, end: 20030401

REACTIONS (3)
  - CHOLECYSTITIS CHRONIC [None]
  - DEEP VEIN THROMBOSIS [None]
  - PAIN [None]
